FAERS Safety Report 9322909 (Version 4)
Quarter: 2013Q3

REPORT INFORMATION
  Report Type: Report from Study
  Country: IL (occurrence: IL)
  Receive Date: 20130602
  Receipt Date: 20130814
  Transmission Date: 20140515
  Serious: Yes (Life-Threatening, Other)
  Sender: FDA-Public Use
  Company Number: PHHY2013IL053173

PATIENT
  Age: 65 Year
  Sex: Male

DRUGS (6)
  1. GLIVEC [Suspect]
     Indication: CHRONIC MYELOID LEUKAEMIA
     Dosage: UNK UKN, UNK
  2. TASIGNA [Suspect]
     Indication: CHRONIC MYELOID LEUKAEMIA
     Dosage: UNK UKN, UNK
     Dates: start: 20120727
  3. ASPIRIN [Concomitant]
     Dosage: UNK UKN, UNK
  4. FLAVIX [Concomitant]
     Dosage: UNK UKN, UNK
  5. CIPRALEX//ESCITALOPRAM [Concomitant]
     Dosage: UNK UKN, UNK
  6. LABETALOL [Concomitant]
     Dosage: UNK UKN, UNK

REACTIONS (25)
  - Myocardial infarction [Unknown]
  - Arrhythmia [Unknown]
  - Coronary artery occlusion [Unknown]
  - Osteoporosis [Unknown]
  - Yellow skin [Unknown]
  - Blood glucose increased [Unknown]
  - Carotene increased [Unknown]
  - Psychotic behaviour [Recovering/Resolving]
  - Blood testosterone decreased [Unknown]
  - Pancreatic enzymes increased [Unknown]
  - Asthenia [Recovering/Resolving]
  - Hypercholesterolaemia [Unknown]
  - Hypertriglyceridaemia [Unknown]
  - Neck pain [Not Recovered/Not Resolved]
  - Pain in extremity [Unknown]
  - Micturition urgency [Unknown]
  - Depression [Unknown]
  - Hyperglycaemia [Unknown]
  - Arthritis [Unknown]
  - Rash [Unknown]
  - Decreased appetite [Unknown]
  - Drug hypersensitivity [Unknown]
  - Erectile dysfunction [Not Recovered/Not Resolved]
  - Weight decreased [Not Recovered/Not Resolved]
  - Fatigue [Recovering/Resolving]
